FAERS Safety Report 9053562 (Version 1)
Quarter: 2013Q1

REPORT INFORMATION
  Report Type: Spontaneous
  Country: US (occurrence: None)
  Receive Date: 20130117
  Receipt Date: 20130117
  Transmission Date: 20140127
  Serious: Yes (Other)
  Sender: FDA-Public Use
  Company Number: 2013SP000187

PATIENT
  Age: 53 Year
  Sex: Male

DRUGS (4)
  1. FLUOROURACIL [Suspect]
     Indication: ADENOCARCINOMA OF COLON
     Route: 040
     Dates: start: 20120604, end: 20121116
  2. OXALIPLATIN [Suspect]
     Indication: ADENOCARCINOMA OF COLON
     Route: 042
     Dates: start: 20120604, end: 20121114
  3. CELECOXIB [Suspect]
     Indication: ADENOCARCINOMA OF COLON
     Route: 048
     Dates: start: 20120604, end: 20121230
  4. CALCIUM FOLINATE [Concomitant]

REACTIONS (5)
  - Cerebral ischaemia [None]
  - Balance disorder [None]
  - Asthenia [None]
  - Fall [None]
  - Blood pressure increased [None]
